FAERS Safety Report 5465250-4 (Version None)
Quarter: 2007Q3

REPORT INFORMATION
  Report Type: 
  Country: None (occurrence: None)
  Receive Date: 20070924
  Receipt Date: 20070917
  Transmission Date: 20080115
  Serious: Yes (Hospitalization, Other)
  Sender: FDA-Public Use
  Company Number: PHNR2007AU01346

PATIENT
  Age: 57 Year
  Sex: Male

DRUGS (2)
  1. ZOMETA [Suspect]
     Indication: OSTEONECROSIS
     Dosage: 4 MG, ONCE/SINGLE
     Route: 042
     Dates: start: 20070615, end: 20070615
  2. PARACETAMOL [Concomitant]

REACTIONS (6)
  - APRAXIA [None]
  - CONJUNCTIVAL OEDEMA [None]
  - EXOPHTHALMOS [None]
  - EYE PAIN [None]
  - INTRAOCULAR PRESSURE INCREASED [None]
  - PAROPHTHALMIA [None]
